FAERS Safety Report 9498317 (Version 7)
Quarter: 2014Q1

REPORT INFORMATION
  Report Type: Spontaneous
  Country: JP (occurrence: JP)
  Receive Date: 20130904
  Receipt Date: 20140114
  Transmission Date: 20141002
  Serious: Yes (Life-Threatening, Hospitalization, Other)
  Sender: FDA-Public Use
  Company Number: JP-PFIZER INC-2013252011

PATIENT
  Age: 65 Year
  Sex: Female
  Weight: 51.7 kg

DRUGS (12)
  1. CELECOX [Suspect]
     Indication: OSTEOARTHRITIS
     Dosage: 200 MG, DAILY
     Route: 048
     Dates: end: 20130706
  2. KIKLIN [Suspect]
     Indication: RENAL FAILURE CHRONIC
     Dosage: 250 MG, 3X/DAY
     Route: 048
     Dates: start: 20130411, end: 20130515
  3. KIKLIN [Suspect]
     Indication: HYPERPHOSPHATAEMIA
     Dosage: 500 MG, 3X/DAY
     Route: 048
     Dates: start: 20130516, end: 20130706
  4. CALTAN [Concomitant]
     Indication: HYPERPHOSPHATAEMIA
     Dosage: UNK
     Route: 048
     Dates: end: 20130706
  5. OXAROL [Concomitant]
     Indication: HYPERPHOSPHATAEMIA
     Dosage: UNK
     Dates: end: 20130613
  6. ROCALTROL [Concomitant]
     Indication: HYPERPHOSPHATAEMIA
     Dosage: UNK
     Dates: start: 20130615, end: 20130706
  7. LIVALO [Concomitant]
     Indication: DYSLIPIDAEMIA
     Dosage: UNK
     Dates: end: 20130706
  8. ROXATIDINE ACETATE HYDRCHLORIDE (ROXATI) [Concomitant]
     Indication: PROPHYLAXIS
     Dosage: UNK
     Dates: end: 20130706
  9. LASIX [Concomitant]
     Indication: PROPHYLAXIS
     Dosage: UNK
     Route: 048
     Dates: end: 20130706
  10. NE SOFT [Concomitant]
     Indication: PROPHYLAXIS
     Dosage: UNK
     Dates: end: 20130706
  11. ALLOPURINOL [Concomitant]
     Indication: PROPHYLAXIS
     Dosage: UNK
     Route: 048
     Dates: end: 20130706
  12. BONALON [Concomitant]
     Indication: PROPHYLAXIS
     Dosage: UNK
     Route: 048
     Dates: start: 20130521, end: 20130706

REACTIONS (7)
  - Gastric ulcer haemorrhage [Recovered/Resolved]
  - Multi-organ failure [Recovered/Resolved with Sequelae]
  - Septic shock [Recovered/Resolved with Sequelae]
  - Peritonitis [Recovered/Resolved with Sequelae]
  - Infectious pleural effusion [Unknown]
  - Constipation [Recovered/Resolved with Sequelae]
  - Pruritus [Recovered/Resolved]
